FAERS Safety Report 19656582 (Version 1)
Quarter: 2021Q3

REPORT INFORMATION
  Report Type: Report from Study
  Country: US (occurrence: US)
  Receive Date: 20210804
  Receipt Date: 20210804
  Transmission Date: 20211014
  Serious: Yes (Hospitalization)
  Sender: FDA-Public Use
  Company Number: US-VERTEX PHARMACEUTICALS-2021-011491

PATIENT
  Age: 31 Year
  Sex: Female

DRUGS (37)
  1. TIZANIDINE. [Concomitant]
     Active Substance: TIZANIDINE
  2. DUONEB [Concomitant]
     Active Substance: ALBUTEROL SULFATE\IPRATROPIUM BROMIDE
     Dosage: NEBULIZER SOLUTION
  3. DOCUSATE [Concomitant]
     Active Substance: DOCUSATE
  4. VITAMIN C [Concomitant]
     Active Substance: ASCORBIC ACID
  5. FORTEO [Concomitant]
     Active Substance: TERIPARATIDE
  6. FLUDROCORTISONE [Concomitant]
     Active Substance: FLUDROCORTISONE
  7. FAMOTIDINE. [Concomitant]
     Active Substance: FAMOTIDINE
  8. URSODIOL. [Concomitant]
     Active Substance: URSODIOL
  9. CALCIUM CITRATE [Concomitant]
     Active Substance: CALCIUM CITRATE
  10. CREON [Concomitant]
     Active Substance: PANCRELIPASE AMYLASE\PANCRELIPASE LIPASE\PANCRELIPASE PROTEASE
  11. TACROLIMUS. [Concomitant]
     Active Substance: TACROLIMUS
     Dosage: 5 MG
  12. TACROLIMUS. [Concomitant]
     Active Substance: TACROLIMUS
     Dosage: 1 MG
  13. HYDROMORPHONE [Concomitant]
     Active Substance: HYDROMORPHONE
  14. SALINE NASAL SPRAY [Concomitant]
     Active Substance: SODIUM CHLORIDE
  15. DULOXETINE DR [Concomitant]
     Active Substance: DULOXETINE
  16. CLINDAMYCIN. [Concomitant]
     Active Substance: CLINDAMYCIN
  17. MYCOPHENOLIC ACID. [Concomitant]
     Active Substance: MYCOPHENOLIC ACID
  18. VITAMIN D2 [Concomitant]
     Active Substance: ERGOCALCIFEROL
     Dosage: 50,000 UNITS
  19. TRAMADOL. [Concomitant]
     Active Substance: TRAMADOL
  20. GABAPENTIN. [Concomitant]
     Active Substance: GABAPENTIN
  21. SODIUM CHLORIDE. [Concomitant]
     Active Substance: SODIUM CHLORIDE
     Dosage: NEBLULIZER SOLUTION
  22. SERTRALINE [Concomitant]
     Active Substance: SERTRALINE HYDROCHLORIDE
  23. TRIKAFTA [Suspect]
     Active Substance: ELEXACAFTOR\IVACAFTOR\TEZACAFTOR
     Indication: CYSTIC FIBROSIS
     Dosage: 2 TABS(100 MG ELEXACAFTOR/ 50 MG TEZACAFTOR/ 75 MG IVACAFTOR) IN AM; 1 TAB(150MG IVACAFTOR) IN PM
     Route: 048
     Dates: start: 20200727
  24. VITAMIN E [Concomitant]
     Active Substance: .ALPHA.-TOCOPHEROL
     Dosage: 400 UNITS
  25. CLONAZEPAM. [Concomitant]
     Active Substance: CLONAZEPAM
     Dosage: 0.5 MG
  26. FEXOFENADINE [Concomitant]
     Active Substance: FEXOFENADINE HYDROCHLORIDE
  27. ATROVENT [Concomitant]
     Active Substance: IPRATROPIUM BROMIDE
  28. BACTRIM [Concomitant]
     Active Substance: SULFAMETHOXAZOLE\TRIMETHOPRIM
     Dosage: 800 MG
  29. AMLODIPINE [Concomitant]
     Active Substance: AMLODIPINE BESYLATE
  30. PREDNISONE. [Concomitant]
     Active Substance: PREDNISONE
  31. TACROLIMUS. [Concomitant]
     Active Substance: TACROLIMUS
     Dosage: 0.5 MG
  32. CLONAZEPAM. [Concomitant]
     Active Substance: CLONAZEPAM
     Dosage: 0.25 MG
  33. BASAGLAR [Concomitant]
     Active Substance: INSULIN GLARGINE
  34. FLONASE SENSIMIST ALLERGY RELIEF [Concomitant]
     Active Substance: FLUTICASONE FUROATE
  35. FERROUS SULFATE. [Concomitant]
     Active Substance: FERROUS SULFATE
  36. GRANISETRON [Concomitant]
     Active Substance: GRANISETRON
  37. PROCHLORPERAZINE. [Concomitant]
     Active Substance: PROCHLORPERAZINE

REACTIONS (3)
  - Gastrostomy tube removal [Recovered/Resolved]
  - Pneumonia [Unknown]
  - Central venous catheter removal [Recovered/Resolved]

NARRATIVE: CASE EVENT DATE: 202107
